FAERS Safety Report 16457468 (Version 1)
Quarter: 2019Q2

REPORT INFORMATION
  Report Type: Spontaneous
  Country: GB (occurrence: GB)
  Receive Date: 20190620
  Receipt Date: 20190620
  Transmission Date: 20190711
  Serious: Yes (Hospitalization, Other)
  Sender: FDA-Public Use
  Company Number: GB-TEVA-2019-GB-1064176

PATIENT
  Age: 76 Year
  Sex: Female

DRUGS (22)
  1. NORTRIPTYLINE [Suspect]
     Active Substance: NORTRIPTYLINE
     Indication: NECK PAIN
     Route: 065
  2. MOMETASONE [Concomitant]
     Active Substance: MOMETASONE
     Route: 045
  3. CYCLIZINE [Concomitant]
     Active Substance: CYCLIZINE
     Route: 065
  4. MIDAZOLAM [Concomitant]
     Active Substance: MIDAZOLAM HYDROCHLORIDE
     Dosage: OVER 24 HOURS COMMENCED USING A SYRINGE DRIVER
     Route: 050
  5. OXYCODONE [Suspect]
     Active Substance: OXYCODONE
     Indication: NECK PAIN
     Dosage: FORMULATION: EXTENDED RELEASE
     Route: 048
  6. PARACETAMOL [Suspect]
     Active Substance: ACETAMINOPHEN
     Indication: MUSCULOSKELETAL CHEST PAIN
  7. AROMASTIN [Concomitant]
     Indication: BREAST CANCER METASTATIC
     Route: 065
  8. LANSOPRAZOLE. [Concomitant]
     Active Substance: LANSOPRAZOLE
     Route: 065
  9. TAMOXIFEN [Concomitant]
     Active Substance: TAMOXIFEN
     Indication: BREAST CANCER METASTATIC
     Route: 065
  10. NORTRIPTYLINE [Suspect]
     Active Substance: NORTRIPTYLINE
     Indication: BREAKTHROUGH PAIN
  11. OXYDOCONE [Suspect]
     Active Substance: OXYCODONE
     Indication: NECK PAIN
     Dosage: OVER 24 HOURS COMMENCED USING A SYRINGE DRIVER
     Route: 050
  12. SPIROMAX [Concomitant]
     Dosage: ROUTE: INHALATION
  13. SERTRALINE [Concomitant]
     Active Substance: SERTRALINE HYDROCHLORIDE
     Route: 065
  14. NIFEDIPINE. [Concomitant]
     Active Substance: NIFEDIPINE
     Route: 065
  15. LEVOTHYROXINE. [Concomitant]
     Active Substance: LEVOTHYROXINE
     Route: 065
  16. PARACETAMOL [Suspect]
     Active Substance: ACETAMINOPHEN
     Indication: BREAKTHROUGH PAIN
  17. NORTRIPTYLINE [Suspect]
     Active Substance: NORTRIPTYLINE
     Indication: MUSCULOSKELETAL CHEST PAIN
  18. DELTA D3 [Concomitant]
     Route: 065
  19. OXYCODONE [Suspect]
     Active Substance: OXYCODONE
     Indication: MUSCULOSKELETAL CHEST PAIN
     Dosage: FORMULATION: IMMEDIATE RELEASE; AT AN AVERAGE TOTAL DAILY DOSE OF 60MG FOR BREAKTHROUGH PAIN
     Route: 048
  20. OXYCODONE [Suspect]
     Active Substance: OXYCODONE
     Indication: BREAKTHROUGH PAIN
     Dosage: SEVERAL BREAKTHROUGH UNSPECIFIED DOSES AFTER ADMISSION
     Route: 048
  21. PARACETAMOL [Suspect]
     Active Substance: ACETAMINOPHEN
     Indication: NECK PAIN
     Route: 065
  22. OXYDOCONE [Suspect]
     Active Substance: OXYCODONE
     Indication: MUSCULOSKELETAL CHEST PAIN

REACTIONS (10)
  - Confusional state [Recovering/Resolving]
  - Neurotoxicity [Recovering/Resolving]
  - Delirium [Recovering/Resolving]
  - Dysphagia [Recovering/Resolving]
  - Somnolence [Recovering/Resolving]
  - Hyperaesthesia [Recovering/Resolving]
  - Emotional distress [Recovering/Resolving]
  - Paradoxical pain [Recovering/Resolving]
  - Agitation [Recovering/Resolving]
  - Drug ineffective [Unknown]
